FAERS Safety Report 11833164 (Version 3)
Quarter: 2016Q3

REPORT INFORMATION
  Report Type: Spontaneous
  Country: DE (occurrence: DE)
  Receive Date: 20151214
  Receipt Date: 20160714
  Transmission Date: 20161109
  Serious: Yes (Other)
  Sender: FDA-Public Use
  Company Number: PHHY2015DE160176

PATIENT
  Age: 46 Year
  Sex: Female

DRUGS (6)
  1. PREDNISOLONE. [Suspect]
     Active Substance: PREDNISOLONE
     Dosage: 20 MG, QD (FOR 3 DAYS)
     Route: 065
  2. ACETYLSALICYLIC ACID [Suspect]
     Active Substance: ASPIRIN
     Indication: PUPILLARY REFLEX IMPAIRED
     Dosage: 100 MG, QD
     Route: 065
  3. PREDNISOLONE. [Suspect]
     Active Substance: PREDNISOLONE
     Dosage: 80 MG, QD (FOR 3 DAYS)
     Route: 065
  4. PREDNISOLONE. [Suspect]
     Active Substance: PREDNISOLONE
     Indication: PUPILLARY REFLEX IMPAIRED
     Dosage: 100 MG, QD (FOR 3 DAYS)
     Route: 065
  5. PREDNISOLONE. [Suspect]
     Active Substance: PREDNISOLONE
     Dosage: 60 MG, QD (FOR 3 DAYS)
     Route: 065
  6. PREDNISOLONE. [Suspect]
     Active Substance: PREDNISOLONE
     Dosage: 40 MG, QD (FOR 3 DAYS)
     Route: 065

REACTIONS (5)
  - Tachycardia [Unknown]
  - Insomnia [Unknown]
  - Swelling face [Unknown]
  - Restlessness [Unknown]
  - Hyperhidrosis [Unknown]
